FAERS Safety Report 7661924-5 (Version None)
Quarter: 2011Q3

REPORT INFORMATION
  Report Type: 
  Country: None (occurrence: None)
  Receive Date: 20110805
  Receipt Date: 20101210
  Transmission Date: 20111222
  Serious: No
  Sender: FDA-Public Use
  Company Number: US-ABBOTT-10P-163-0691561-00

PATIENT
  Sex: Male
  Weight: 91.708 kg

DRUGS (4)
  1. PROZAC [Concomitant]
     Indication: DEPRESSION
  2. VYVANSE [Concomitant]
     Indication: ATTENTION DEFICIT/HYPERACTIVITY DISORDER
  3. NIASPAN [Suspect]
     Indication: BLOOD CHOLESTEROL INCREASED
     Dates: start: 20101029, end: 20101209
  4. NIASPAN [Suspect]
     Indication: BLOOD TRIGLYCERIDES INCREASED

REACTIONS (7)
  - INFLUENZA LIKE ILLNESS [None]
  - RESTLESSNESS [None]
  - ABDOMINAL PAIN UPPER [None]
  - MYALGIA [None]
  - COLD SWEAT [None]
  - FLUSHING [None]
  - PRURITUS [None]
